FAERS Safety Report 10543961 (Version 4)
Quarter: 2015Q1

REPORT INFORMATION
  Report Type: Report from Study
  Country: AU (occurrence: AU)
  Receive Date: 20141027
  Receipt Date: 20150303
  Transmission Date: 20150720
  Serious: Yes (Hospitalization)
  Sender: FDA-Public Use
  Company Number: AU-B.I. PHARMACEUTICALS,INC./RIDGEFIELD-2014-BI-38799BI

PATIENT
  Age: 72 Year
  Sex: Male
  Weight: 83.3 kg

DRUGS (31)
  1. BIBF 1120 [Suspect]
     Active Substance: NINTEDANIB
     Indication: PLEURAL MESOTHELIOMA MALIGNANT
     Dosage: 400 MG
     Route: 048
     Dates: start: 20140813
  2. PEMETREXED [Suspect]
     Active Substance: PEMETREXED
     Dosage: FORMULATION:IV CHEMOTHERAPY, DAILY DOSE: 1100 MG Q3/52
     Route: 042
     Dates: start: 20140923, end: 20140923
  3. ATACAND [Concomitant]
     Active Substance: CANDESARTAN CILEXETIL
     Indication: HYPERTENSION
     Dosage: 32 MG
     Route: 048
     Dates: start: 201308
  4. AMOXICILLIN+CLAVULANIC ACID [Concomitant]
     Active Substance: AMOXICILLIN\CLAVULANIC ACID
     Indication: MICTURITION URGENCY
     Dosage: DOSE: 875/125; FREQUENCY: BD
     Route: 048
     Dates: start: 20140924, end: 20140928
  5. LOPERAMIDE HCL [Concomitant]
     Active Substance: LOPERAMIDE HYDROCHLORIDE
     Indication: DIARRHOEA
     Route: 048
     Dates: start: 20141005
  6. EZETROL [Concomitant]
     Active Substance: EZETIMIBE
     Indication: HYPERTENSION
     Dosage: 10 MG
     Route: 048
     Dates: start: 2004
  7. PANADOL [Concomitant]
     Active Substance: ACETAMINOPHEN
     Indication: OSTEOARTHRITIS
     Dosage: 3390 MG
     Route: 048
     Dates: start: 2011
  8. ASPIRIN. [Concomitant]
     Active Substance: ASPIRIN
     Indication: ANTICOAGULANT THERAPY
     Dosage: 300 MG
     Route: 048
     Dates: start: 2004
  9. FOLATE [Concomitant]
     Active Substance: FOLATE SODIUM
     Indication: PROPHYLACTIC CHEMOTHERAPY
     Dosage: 500 MG
     Route: 048
     Dates: start: 20140805
  10. TRAMADOL [Concomitant]
     Active Substance: TRAMADOL
     Indication: CHEST PAIN
     Dosage: DOSE: 10/5 MG; FREQUENCY: 1 TAB MANE/2 TAB NOCTE
     Route: 048
     Dates: start: 20140923
  11. SOMAC [Concomitant]
     Active Substance: PANTOPRAZOLE SODIUM
     Indication: GASTROOESOPHAGEAL REFLUX DISEASE
     Dosage: 40 MG
     Route: 048
     Dates: start: 2012
  12. CISPLATIN. [Suspect]
     Active Substance: CISPLATIN
     Indication: PLEURAL MESOTHELIOMA MALIGNANT
     Dosage: FORMULATION:IV CHEMOTHERAPY, DAILY DOSE: 165 MG Q3/52
     Route: 042
     Dates: start: 20140812, end: 20140812
  13. PEMETREXED [Suspect]
     Active Substance: PEMETREXED
     Indication: PLEURAL MESOTHELIOMA MALIGNANT
     Dosage: FORMULATION:IV CHEMOTHERAPY, DAILY DOSE: 1100 MG Q3/52
     Route: 042
     Dates: start: 20140812, end: 20140812
  14. MINIPRESS [Concomitant]
     Active Substance: PRAZOSIN HYDROCHLORIDE
     Indication: HYPERTENSION
     Dosage: 1 MG
     Route: 048
     Dates: start: 2004
  15. SIMVASTATIN. [Concomitant]
     Active Substance: SIMVASTATIN
     Indication: HYPERCHOLESTEROLAEMIA
     Dosage: 40 MG
     Route: 048
     Dates: start: 1984
  16. CALTRATE PLUS VITAMIN D [Concomitant]
     Indication: SUPPLEMENTATION THERAPY
     Dosage: 500 U
     Route: 048
     Dates: start: 2013
  17. CISPLATIN. [Suspect]
     Active Substance: CISPLATIN
     Dosage: FORMULATION:IV CHEMOTHERAPY, DAILY DOSE: 165 MG Q3/52
     Route: 042
     Dates: start: 20140923, end: 20140923
  18. ULTRA GLUCOSAMINE PLUS [Concomitant]
     Indication: OSTEOARTHRITIS
     Dosage: 1500 MG
     Route: 048
     Dates: start: 2004
  19. TEMAZEPAM. [Concomitant]
     Active Substance: TEMAZEPAM
     Indication: INSOMNIA
     Route: 048
     Dates: start: 20140812, end: 20140823
  20. DEXAMETHASONE. [Concomitant]
     Active Substance: DEXAMETHASONE
     Indication: PROPHYLAXIS OF NAUSEA AND VOMITING
     Dosage: FREQUENCY: CHEMO DAY 1 TO 3
     Route: 048
     Dates: start: 20141013, end: 20141016
  21. DEXAMETHASONE. [Concomitant]
     Active Substance: DEXAMETHASONE
     Dosage: 4 MG
     Route: 048
     Dates: start: 20140811, end: 20140811
  22. BIBF 1120 [Suspect]
     Active Substance: NINTEDANIB
     Route: 048
     Dates: start: 20140924
  23. MS CONTIN [Concomitant]
     Active Substance: MORPHINE SULFATE
     Indication: COUGH
     Dosage: 5 MG
     Route: 048
     Dates: start: 20140701, end: 20140826
  24. PARACETAMOL+CODEINE [Concomitant]
     Active Substance: ACETAMINOPHEN\CODEINE PHOSPHATE
     Indication: NEPHROLITHIASIS
     Route: 048
     Dates: start: 1985, end: 20140826
  25. PARACETAMOL+CODEINE [Concomitant]
     Active Substance: ACETAMINOPHEN\CODEINE PHOSPHATE
     Indication: CHEST PAIN
  26. JANUMET [Concomitant]
     Active Substance: METFORMIN HYDROCHLORIDE\SITAGLIPTIN PHOSPHATE
     Indication: TYPE 2 DIABETES MELLITUS
     Dosage: 100 MG
     Route: 048
     Dates: start: 20140701
  27. BIBF 1120 [Suspect]
     Active Substance: NINTEDANIB
     Route: 048
     Dates: start: 20141010
  28. METOCLOPRAMIDE. [Concomitant]
     Active Substance: METOCLOPRAMIDE
     Indication: ANTIEMETIC SUPPORTIVE CARE
     Route: 048
     Dates: start: 20140927
  29. DIABEX [Concomitant]
     Active Substance: METFORMIN HYDROCHLORIDE
     Indication: TYPE 2 DIABETES MELLITUS
     Dosage: 2000 MG
     Route: 048
     Dates: start: 2004
  30. VENTOLIN [Concomitant]
     Active Substance: ALBUTEROL SULFATE
     Indication: COUGH
     Dosage: INHALER
     Route: 048
     Dates: start: 2009
  31. MAGNESIUM [Concomitant]
     Active Substance: MAGNESIUM
     Indication: HYPOMAGNESAEMIA
     Dosage: 500 MG
     Route: 048
     Dates: start: 20140903

REACTIONS (2)
  - Pyrexia [Recovered/Resolved]
  - Pyrexia [Recovered/Resolved]

NARRATIVE: CASE EVENT DATE: 20140816
